FAERS Safety Report 13065287 (Version 3)
Quarter: 2017Q1

REPORT INFORMATION
  Report Type: Spontaneous
  Country: US (occurrence: US)
  Receive Date: 20161227
  Receipt Date: 20170331
  Transmission Date: 20170428
  Serious: No
  Sender: FDA-Public Use
  Company Number: US-REGENERON PHARMACEUTICALS, INC.-2016-25308

PATIENT

DRUGS (5)
  1. EYE DROPS [Concomitant]
     Indication: PRODUCT USED FOR UNKNOWN INDICATION
     Dosage: UNK
  2. GABAPENTIN. [Concomitant]
     Active Substance: GABAPENTIN
     Indication: NEUROPATHY PERIPHERAL
     Dosage: 600 MG MILLIGRAM(S), ONCE IN THE MORNING, TWO AT NIGHT
  3. EYLEA [Suspect]
     Active Substance: AFLIBERCEPT
     Indication: MACULAR DEGENERATION
     Dosage: LEFT EYE
     Dates: start: 20150114
  4. PRESERVISION AREDS [Concomitant]
     Active Substance: MINERALS\VITAMINS
     Indication: NUTRITIONAL SUPPLEMENTATION
     Dosage: UNK UNK, BID
  5. EYLEA [Suspect]
     Active Substance: AFLIBERCEPT
     Dosage: LEFT EYE, LAST DOSE PRIOR TO EVENT
     Dates: start: 20161214, end: 20161214

REACTIONS (1)
  - No adverse event [Unknown]
